FAERS Safety Report 25994730 (Version 2)
Quarter: 2025Q4

REPORT INFORMATION
  Report Type: Spontaneous
  Country: US (occurrence: US)
  Receive Date: 20251104
  Receipt Date: 20251230
  Transmission Date: 20260118
  Serious: No
  Sender: AMGEN
  Company Number: US-AMGEN-USASP2025209373

PATIENT
  Age: 82 Year
  Sex: Male

DRUGS (1)
  1. AIMOVIG [Suspect]
     Active Substance: ERENUMAB-AOOE
     Indication: Migraine
     Dosage: 140 MILLIGRAM
     Route: 058

REACTIONS (5)
  - Device difficult to use [Unknown]
  - Injection site indentation [Unknown]
  - Drug dose omission by device [Unknown]
  - Product communication issue [Unknown]
  - Device use error [Unknown]

NARRATIVE: CASE EVENT DATE: 20251016
